FAERS Safety Report 13676657 (Version 1)
Quarter: 2017Q2

REPORT INFORMATION
  Report Type: Spontaneous
  Country: US (occurrence: US)
  Receive Date: 20170622
  Receipt Date: 20170622
  Transmission Date: 20170830
  Serious: No
  Sender: FDA-Public Use
  Company Number: US-PFIZER INC-2017269399

PATIENT
  Sex: Female

DRUGS (1)
  1. XELJANZ [Suspect]
     Active Substance: TOFACITINIB CITRATE
     Dosage: 5 MG, UNK

REACTIONS (5)
  - Constipation [Unknown]
  - Joint swelling [Recovering/Resolving]
  - Blood pressure increased [Unknown]
  - Arthralgia [Recovering/Resolving]
  - Fatigue [Recovering/Resolving]
